FAERS Safety Report 4341571-3 (Version None)
Quarter: 2004Q2

REPORT INFORMATION
  Report Type: 
  Country: None (occurrence: None)
  Receive Date: 20040415
  Receipt Date: 20040405
  Transmission Date: 20050107
  Serious: Yes (Hospitalization)
  Sender: FDA-Public Use
  Company Number: 2004CG00670

PATIENT
  Age: 57 Year
  Sex: Male

DRUGS (9)
  1. TENORDATE [Suspect]
     Indication: CORONARY ARTERY INSUFFICIENCY
     Dates: start: 20040201
  2. TENORDATE [Suspect]
     Indication: HYPERTENSION
     Dates: start: 20040201
  3. OMEPRAZOLE [Suspect]
     Indication: PROPHYLAXIS
     Dosage: 20 MG DAILY PO
     Route: 048
  4. OMEPRAZOLE [Suspect]
     Indication: ULCER
     Dosage: 20 MG DAILY PO
     Route: 048
  5. BI-PROFENID [Suspect]
     Indication: MUSCULOSKELETAL PAIN
     Dosage: 150 MG BID PO
     Route: 048
  6. PREDNISONE [Suspect]
     Indication: MUSCULOSKELETAL PAIN
     Dosage: 7 MG DAILY PO
     Route: 048
  7. TRIATEC [Suspect]
     Indication: CORONARY ARTERY INSUFFICIENCY
     Dates: start: 20040201
  8. TRIATEC [Suspect]
     Indication: HYPERTENSION
     Dates: start: 20040201
  9. ENBREL [Suspect]
     Indication: MUSCULOSKELETAL PAIN
     Dosage: 25 MG BIWK SQ
     Route: 058
     Dates: start: 20030801, end: 20040209

REACTIONS (1)
  - MYOCARDIAL INFARCTION [None]
